FAERS Safety Report 17603356 (Version 6)
Quarter: 2021Q1

REPORT INFORMATION
  Report Type: Spontaneous
  Country: US (occurrence: US)
  Receive Date: 20200331
  Receipt Date: 20210320
  Transmission Date: 20210419
  Serious: Yes (Hospitalization)
  Sender: FDA-Public Use
  Company Number: US-ROCHE-2572321

PATIENT
  Age: 76 Year
  Sex: Female

DRUGS (34)
  1. ESBRIET [Suspect]
     Active Substance: PIRFENIDONE
     Indication: IDIOPATHIC PULMONARY FIBROSIS
     Route: 048
     Dates: start: 20181006
  2. ELIQUIS [Concomitant]
     Active Substance: APIXABAN
  3. LUMIGAN [Concomitant]
     Active Substance: BIMATOPROST
  4. BUMETANIDE. [Concomitant]
     Active Substance: BUMETANIDE
  5. DILTIAZEM ER [Concomitant]
     Active Substance: DILTIAZEM
  6. ROSUVASTATIN. [Concomitant]
     Active Substance: ROSUVASTATIN
  7. AZELASTINE. [Concomitant]
     Active Substance: AZELASTINE HYDROCHLORIDE
  8. DOXYCYCLINE HYCLATE. [Concomitant]
     Active Substance: DOXYCYCLINE HYCLATE
  9. PONARIS OIL [Concomitant]
  10. CYANOCOBALAMIN. [Concomitant]
     Active Substance: CYANOCOBALAMIN
  11. METHYLPREDNISOLONE. [Concomitant]
     Active Substance: METHYLPREDNISOLONE
  12. METOPROLOL TARTRATE. [Concomitant]
     Active Substance: METOPROLOL TARTRATE
  13. RHOPRESSA [Concomitant]
     Active Substance: NETARSUDIL MESYLATE
  14. BENZONATATE. [Concomitant]
     Active Substance: BENZONATATE
  15. BUMETANIDE. [Concomitant]
     Active Substance: BUMETANIDE
  16. BUSPIRONE [Concomitant]
     Active Substance: BUSPIRONE HYDROCHLORIDE
  17. CYCLOBENZAPRINE. [Concomitant]
     Active Substance: CYCLOBENZAPRINE
  18. DIGOXIN. [Concomitant]
     Active Substance: DIGOXIN
  19. FOLBEE [Concomitant]
     Active Substance: CYANOCOBALAMIN\FOLIC ACID\PYRIDOXINE HYDROCHLORIDE
  20. LOSARTAN POTASSIUM. [Concomitant]
     Active Substance: LOSARTAN POTASSIUM
  21. METRONIDAZOLE. [Concomitant]
     Active Substance: METRONIDAZOLE
  22. OMEPRAZOLE. [Concomitant]
     Active Substance: OMEPRAZOLE
  23. POTASSIUM CHLORIDE. [Concomitant]
     Active Substance: POTASSIUM CHLORIDE
  24. URSODOL [Concomitant]
  25. ESBRIET [Suspect]
     Active Substance: PIRFENIDONE
     Route: 048
     Dates: start: 20180106
  26. NITROGLYCERIN. [Concomitant]
     Active Substance: NITROGLYCERIN
  27. ONDANSETRON [Concomitant]
     Active Substance: ONDANSETRON
  28. FLORASTOR [SACCHAROMYCES BOULARDII] [Concomitant]
  29. CLINDAMYCIN. [Concomitant]
     Active Substance: CLINDAMYCIN
  30. FLUCONAZOLE. [Concomitant]
     Active Substance: FLUCONAZOLE
  31. AZELAIC ACID. [Concomitant]
     Active Substance: AZELAIC ACID
  32. JANUMET XR [Concomitant]
     Active Substance: METFORMIN HYDROCHLORIDE\SITAGLIPTIN PHOSPHATE
  33. ESBRIET [Suspect]
     Active Substance: PIRFENIDONE
     Route: 048
     Dates: start: 20181006
  34. KLOR?CON M10 [Concomitant]
     Active Substance: POTASSIUM CHLORIDE

REACTIONS (6)
  - Heart rate increased [Unknown]
  - Nausea [Unknown]
  - Renal failure [Unknown]
  - Blood magnesium decreased [Unknown]
  - Diarrhoea [Unknown]
  - Chest pain [Unknown]

NARRATIVE: CASE EVENT DATE: 20200620
